FAERS Safety Report 22186310 (Version 2)
Quarter: 2023Q2

REPORT INFORMATION
  Report Type: Spontaneous
  Country: US (occurrence: US)
  Receive Date: 20230407
  Receipt Date: 20230517
  Transmission Date: 20230722
  Serious: No
  Sender: FDA-Public Use
  Company Number: US-BEH-2023157290

PATIENT
  Age: 38 Year
  Sex: Male

DRUGS (3)
  1. HUMATE-P [Suspect]
     Active Substance: HUMAN COAGULATION FACTOR VIII/VON WILLEBRAND FACTOR COMPLEX
     Indication: Von Willebrand^s disease
     Dosage: UNK
     Route: 065
     Dates: start: 20230121, end: 20230125
  2. HUMATE-P [Suspect]
     Active Substance: HUMAN COAGULATION FACTOR VIII/VON WILLEBRAND FACTOR COMPLEX
     Dosage: UNK
     Route: 065
     Dates: start: 20230126, end: 20230127
  3. HUMATE-P [Suspect]
     Active Substance: HUMAN COAGULATION FACTOR VIII/VON WILLEBRAND FACTOR COMPLEX
     Dosage: UNK
     Route: 065
     Dates: start: 20230128, end: 20230129

REACTIONS (8)
  - Asthenia [Unknown]
  - Feeling hot [Unknown]
  - Hypotension [Unknown]
  - Infusion site discomfort [Unknown]
  - Erythema [Unknown]
  - Ocular hyperaemia [Unknown]
  - Palpitations [Unknown]
  - Chest discomfort [Unknown]

NARRATIVE: CASE EVENT DATE: 20230128
